FAERS Safety Report 4338577-7 (Version None)
Quarter: 2004Q2

REPORT INFORMATION
  Report Type: 
  Country: None (occurrence: None)
  Receive Date: 20040409
  Receipt Date: 20040402
  Transmission Date: 20050107
  Serious: Yes (Hospitalization)
  Sender: FDA-Public Use
  Company Number: BE-JNJFOC-20040400661

PATIENT
  Age: 28 Year
  Sex: Male

DRUGS (1)
  1. CISAPRIDE (CISAPRIDE) [Suspect]
     Indication: IMPAIRED GASTRIC EMPTYING
     Dosage: 5 MG, 4 IN 1 DAY
     Dates: start: 20040212, end: 20040304

REACTIONS (1)
  - LUNG TRANSPLANT [None]
